FAERS Safety Report 22159155 (Version 1)
Quarter: 2023Q1

REPORT INFORMATION
  Report Type: Spontaneous
  Country: US (occurrence: US)
  Receive Date: 20230331
  Receipt Date: 20230331
  Transmission Date: 20230418
  Serious: No
  Sender: FDA-Public Use
  Company Number: US-SUN PHARMACEUTICAL INDUSTRIES LTD-2023R1-376798

PATIENT
  Sex: Male

DRUGS (1)
  1. LOTEPREDNOL [Suspect]
     Active Substance: LOTEPREDNOL
     Indication: Product used for unknown indication
     Dosage: UNK, TID
     Route: 047

REACTIONS (2)
  - Product quality issue [Unknown]
  - Product use issue [Unknown]
